FAERS Safety Report 5949136-4 (Version None)
Quarter: 2008Q4

REPORT INFORMATION
  Report Type: 
  Country: None (occurrence: None)
  Receive Date: 20081111
  Receipt Date: 20081105
  Transmission Date: 20090506
  Serious: No
  Sender: FDA-Public Use
  Company Number: US-B.I. PHARMACEUTICALS,INC./RIDGEFIELD-2008-BP-16742BP

PATIENT
  Age: 39 Year
  Sex: Male

DRUGS (2)
  1. MIRAPEX [Suspect]
  2. ASPIRIN [Suspect]
     Dates: start: 20081001

REACTIONS (2)
  - HUNGER [None]
  - WEIGHT INCREASED [None]
